FAERS Safety Report 10618583 (Version 1)
Quarter: 2014Q4

REPORT INFORMATION
  Report Type: Spontaneous
  Country: US (occurrence: None)
  Receive Date: 20141125
  Receipt Date: 20141125
  Transmission Date: 20150529
  Serious: Yes (Hospitalization)
  Sender: FDA-Public Use
  Company Number: US-H4001-14-01460

PATIENT
  Age: 53 Year
  Sex: Male

DRUGS (17)
  1. MYCELEX (CLOTRIMAZOLE) [Concomitant]
  2. LEVAQUIN [Concomitant]
     Active Substance: LEVOFLOXACIN
  3. LINEZOLID. [Concomitant]
     Active Substance: LINEZOLID
  4. PHENERGAN [Concomitant]
     Active Substance: PROMETHAZINE HYDROCHLORIDE
  5. ROXICODONE [Concomitant]
     Active Substance: OXYCODONE HYDROCHLORIDE
  6. DIFLUCAN [Concomitant]
     Active Substance: FLUCONAZOLE
  7. ZOFRAN (ONDANSETRON) [Concomitant]
  8. VITAMIN D (COLECALCIFEROL) [Concomitant]
  9. DEXAMETHASONE (DEXAMETHASONE SODIUM PHOSPHATE) (UNKNOWN) (DEXAMETHASONE SODIUM PHOSPHATE) [Suspect]
     Active Substance: DEXAMETHASONE
     Indication: PLASMA CELL MYELOMA
     Dosage: ON DAY OF CHEMO AND DAY AFTER
     Route: 042
     Dates: start: 20110328, end: 2011
  10. ZOVIRAX (ACICLOVIR) [Concomitant]
     Active Substance: ACYCLOVIR
  11. MS CONTIN (MORPHINE SULFATE) [Concomitant]
  12. MULTIVITAMIN (VIGRAN) (ERGOCALCIFEOL, ASCORBIC ACID, PYRIDOXINE HYDROCHLORIDE, THIAMINE HYDROCHLORIDE, RETINOL, RIBOFLAVIN, NICOTINAMIDE, CALCIUM PANTHOTHENATE) [Concomitant]
     Active Substance: VITAMINS
  13. PERIDEX (CHLORHEXIDINE GLUCONATE) [Concomitant]
  14. MELPHALAN [Concomitant]
     Active Substance: MELPHALAN
  15. SENNOKOT-S (COLOXYL WITH SENNA) [Concomitant]
  16. VELCADE [Suspect]
     Active Substance: BORTEZOMIB
     Indication: PLASMA CELL MYELOMA
     Dosage: ON DYAS 1, 4, 8, AND 11
     Route: 042
     Dates: start: 20110328, end: 20110901
  17. ZOMETA [Concomitant]
     Active Substance: ZOLEDRONIC ACID

REACTIONS (5)
  - Clostridium difficile colitis [None]
  - Rash erythematous [None]
  - Chills [None]
  - Febrile neutropenia [None]
  - White blood cell count decreased [None]

NARRATIVE: CASE EVENT DATE: 20111022
